FAERS Safety Report 15334681 (Version 2)
Quarter: 2018Q4

REPORT INFORMATION
  Report Type: Spontaneous
  Country: BR (occurrence: BR)
  Receive Date: 20180830
  Receipt Date: 20180904
  Transmission Date: 20190204
  Serious: Yes (Other)
  Sender: FDA-Public Use
  Company Number: BR-JNJFOC-20180835151

PATIENT
  Age: 61 Year
  Sex: Male

DRUGS (5)
  1. BENZETACIL LA [Interacting]
     Active Substance: PENICILLIN G BENZATHINE
     Indication: NASOPHARYNGITIS
     Route: 065
     Dates: start: 201808
  2. BENZETACIL LA [Interacting]
     Active Substance: PENICILLIN G BENZATHINE
     Indication: RESPIRATORY TRACT INFECTION
     Route: 065
     Dates: start: 201808
  3. BENZETACIL LA [Interacting]
     Active Substance: PENICILLIN G BENZATHINE
     Indication: CONJUNCTIVITIS
     Route: 065
     Dates: start: 201808
  4. BENZETACIL LA [Interacting]
     Active Substance: PENICILLIN G BENZATHINE
     Indication: INFLUENZA
     Route: 065
     Dates: start: 201808
  5. SIMPONI [Suspect]
     Active Substance: GOLIMUMAB
     Indication: PSORIATIC ARTHROPATHY
     Route: 058
     Dates: start: 2017

REACTIONS (3)
  - Respiratory tract infection [Not Recovered/Not Resolved]
  - Drug interaction [Unknown]
  - Conjunctivitis [Not Recovered/Not Resolved]

NARRATIVE: CASE EVENT DATE: 201808
